FAERS Safety Report 14836177 (Version 14)
Quarter: 2021Q2

REPORT INFORMATION
  Report Type: Spontaneous
  Country: US (occurrence: US)
  Receive Date: 20180502
  Receipt Date: 20210507
  Transmission Date: 20210716
  Serious: Yes (Hospitalization, Other)
  Sender: FDA-Public Use
  Company Number: US-PFIZER INC-2018177203

PATIENT
  Age: 65 Year
  Sex: Female
  Weight: 142.88 kg

DRUGS (3)
  1. BOSULIF [Suspect]
     Active Substance: BOSUTINIB MONOHYDRATE
     Dosage: 400 MG, 1X/DAY
     Route: 048
     Dates: start: 201810
  2. BOSULIF [Suspect]
     Active Substance: BOSUTINIB MONOHYDRATE
     Dosage: 100 MG
  3. BOSULIF [Suspect]
     Active Substance: BOSUTINIB MONOHYDRATE
     Indication: CHRONIC MYELOID LEUKAEMIA
     Dosage: 500 MG, 1X/DAY
     Route: 048
     Dates: start: 2018, end: 2018

REACTIONS (35)
  - Cataract [Not Recovered/Not Resolved]
  - Fall [Unknown]
  - Eye swelling [Unknown]
  - Influenza [Unknown]
  - Gait disturbance [Recovered/Resolved with Sequelae]
  - Alopecia [Unknown]
  - Anosmia [Unknown]
  - Bipolar disorder [Unknown]
  - Asthenia [Unknown]
  - Renal failure [Unknown]
  - Cellulitis [Unknown]
  - Weight increased [Recovered/Resolved]
  - Swelling [Recovered/Resolved with Sequelae]
  - Renal disorder [Unknown]
  - White blood cell count increased [Unknown]
  - Rib fracture [Unknown]
  - Dyspnoea [Recovered/Resolved]
  - Nasopharyngitis [Unknown]
  - Nausea [Unknown]
  - Fatigue [Unknown]
  - Anxiety [Unknown]
  - Illness [Unknown]
  - Pneumonia viral [Recovered/Resolved]
  - Meningitis [Unknown]
  - Fluid retention [Unknown]
  - Anger [Unknown]
  - Salivary gland enlargement [Unknown]
  - Parathyroid disorder [Recovered/Resolved]
  - Hypersensitivity [Unknown]
  - Constipation [Unknown]
  - Diarrhoea [Unknown]
  - Decreased immune responsiveness [Unknown]
  - Vomiting [Unknown]
  - Headache [Unknown]
  - Decreased appetite [Unknown]

NARRATIVE: CASE EVENT DATE: 201804
